FAERS Safety Report 7480890-9 (Version None)
Quarter: 2011Q2

REPORT INFORMATION
  Report Type: 
  Country: None (occurrence: None)
  Receive Date: 20110506
  Receipt Date: 20110421
  Transmission Date: 20111010
  Serious: Yes (Hospitalization)
  Sender: FDA-Public Use
  Company Number: 030205

PATIENT
  Sex: Female

DRUGS (10)
  1. RABEPRAZOLE SODIUM [Concomitant]
  2. KETOPROFEN [Concomitant]
  3. DEXTROMETHORPHAN HYDROBROMIDE [Concomitant]
  4. DICLOFENAC SODIUM [Concomitant]
  5. AMBROXOL HYDROCHLORIDE [Concomitant]
  6. CIMZIA [Suspect]
     Indication: RHEUMATOID ARTHRITIS
     Dosage: SEE IMAGE
     Route: 058
     Dates: start: 20100709, end: 20110318
  7. CIMZIA [Suspect]
     Indication: RHEUMATOID ARTHRITIS
     Dosage: SEE IMAGE
     Route: 058
     Dates: start: 20091222
  8. PROGRAF [Suspect]
     Indication: RHEUMATOID ARTHRITIS
     Dosage: 2 MG ORAL
     Route: 048
     Dates: start: 20091124
  9. PREDNISOLONE [Suspect]
     Indication: RHEUMATOID ARTHRITIS
     Dosage: 5 MG ORAL
     Route: 048
     Dates: start: 20081022
  10. TEPRENONE [Concomitant]

REACTIONS (13)
  - BRONCHOPNEUMONIA [None]
  - SEPTIC SHOCK [None]
  - INFECTION [None]
  - ALANINE AMINOTRANSFERASE INCREASED [None]
  - BLOOD UREA INCREASED [None]
  - FIBRIN DEGRADATION PRODUCTS INCREASED [None]
  - BLOOD CREATININE INCREASED [None]
  - ASPARTATE AMINOTRANSFERASE INCREASED [None]
  - PULMONARY FIBROSIS [None]
  - FIBRIN D DIMER INCREASED [None]
  - HAEMOGLOBIN DECREASED [None]
  - PROTHROMBIN TIME PROLONGED [None]
  - INTERNATIONAL NORMALISED RATIO INCREASED [None]
